FAERS Safety Report 6869233-9 (Version None)
Quarter: 2010Q3

REPORT INFORMATION
  Report Type: 
  Country: None (occurrence: None)
  Receive Date: 20100722
  Receipt Date: 20100713
  Transmission Date: 20110219
  Serious: Yes (Congenital Anomaly)
  Sender: FDA-Public Use
  Company Number: GB-B.I. PHARMACEUTICALS,INC./RIDGEFIELD-2010-BP-05010BP

PATIENT
  Sex: Female

DRUGS (5)
  1. VIRAMUNE [Suspect]
     Indication: DRUG EXPOSURE DURING PREGNANCY
     Route: 064
     Dates: start: 20070801, end: 20070905
  2. KALETRA [Suspect]
     Indication: DRUG EXPOSURE DURING PREGNANCY
     Route: 064
     Dates: start: 20070905
  3. SUSTIVA [Suspect]
     Indication: DRUG EXPOSURE DURING PREGNANCY
     Route: 064
     Dates: start: 20021001, end: 20070816
  4. COMBIVIR [Suspect]
     Indication: DRUG EXPOSURE DURING PREGNANCY
     Route: 064
     Dates: start: 20070920
  5. ZIAGEN [Suspect]
     Indication: DRUG EXPOSURE DURING PREGNANCY

REACTIONS (9)
  - CARDIAC MALPOSITION [None]
  - DEFORMITY THORAX [None]
  - DIAPHRAGMATIC APLASIA [None]
  - EXOMPHALOS [None]
  - HEAD CIRCUMFERENCE [None]
  - HEPATIC DISPLACEMENT [None]
  - MATERNAL DRUGS AFFECTING FOETUS [None]
  - MICROCEPHALY [None]
  - PREMATURE BABY [None]
